FAERS Safety Report 10003736 (Version 1)
Quarter: 2014Q1

REPORT INFORMATION
  Report Type: Spontaneous
  Country: FR (occurrence: FR)
  Receive Date: 20140312
  Receipt Date: 20140312
  Transmission Date: 20141002
  Serious: Yes (Hospitalization)
  Sender: FDA-Public Use
  Company Number: FR-009507513-1403FRA005182

PATIENT
  Age: 53 Year
  Sex: Female

DRUGS (5)
  1. INEGY [Suspect]
     Dosage: 10 MG/ 40 MG
     Route: 048
     Dates: end: 20140128
  2. AXELER [Suspect]
     Dosage: 40MG/10MG
     Route: 065
  3. ALDACTONE (CANRENOATE POTASSIUM) [Suspect]
     Dosage: 25 MG, QD
     Route: 048
     Dates: end: 20140128
  4. EUPRESSYL [Suspect]
     Dosage: 30 MG, BID
     Route: 048
     Dates: end: 20140128
  5. AUGMENTIN [Suspect]
     Dosage: 1 G, Q3D
     Route: 048
     Dates: start: 20140118, end: 20140128

REACTIONS (1)
  - Renal failure acute [Recovered/Resolved]
